FAERS Safety Report 7503719-9 (Version None)
Quarter: 2011Q2

REPORT INFORMATION
  Report Type: 
  Country: None (occurrence: None)
  Receive Date: 20110518
  Receipt Date: 20110505
  Transmission Date: 20111010
  Serious: Yes (Other)
  Sender: FDA-Public Use
  Company Number: FR-1186155

PATIENT
  Age: 9 Year
  Sex: Male
  Weight: 28.5 kg

DRUGS (1)
  1. CYCLOPENTOLATE HCL [Suspect]
     Dosage: 3 GTT OU, OPHTHALMIC
     Route: 047
     Dates: start: 20101117, end: 20101117

REACTIONS (7)
  - GRAND MAL CONVULSION [None]
  - LOSS OF CONSCIOUSNESS [None]
  - AMNESIA [None]
  - ABDOMINAL PAIN [None]
  - SALIVARY HYPERSECRETION [None]
  - PHOTOPHOBIA [None]
  - MYDRIASIS [None]
